FAERS Safety Report 19861947 (Version 1)
Quarter: 2021Q3

REPORT INFORMATION
  Report Type: Report from Study
  Country: US (occurrence: IT)
  Receive Date: 20210920
  Receipt Date: 20210920
  Transmission Date: 20211014
  Serious: Yes (Hospitalization)
  Sender: FDA-Public Use
  Company Number: US-HORIZON THERAPEUTICS-HZN-2021-006837

PATIENT

DRUGS (5)
  1. CRESTOR [Concomitant]
     Active Substance: ROSUVASTATIN CALCIUM
     Indication: PRODUCT USED FOR UNKNOWN INDICATION
  2. CARDIOASPIRIN [Concomitant]
     Active Substance: ASPIRIN
     Indication: PRODUCT USED FOR UNKNOWN INDICATION
  3. RAYOS [Suspect]
     Active Substance: PREDNISONE
     Indication: PNEUMONIA
     Dosage: 25 MG, QD
     Route: 048
     Dates: start: 20120609, end: 20210726
  4. LASIX [Concomitant]
     Active Substance: FUROSEMIDE
     Indication: PRODUCT USED FOR UNKNOWN INDICATION
  5. CARDICOR [Concomitant]
     Active Substance: BISOPROLOL
     Indication: PRODUCT USED FOR UNKNOWN INDICATION

REACTIONS (4)
  - Polyuria [Recovering/Resolving]
  - Hyperglycaemia [Recovering/Resolving]
  - Steroid diabetes [Recovering/Resolving]
  - Weight decreased [Recovering/Resolving]

NARRATIVE: CASE EVENT DATE: 20210731
